FAERS Safety Report 25443224 (Version 5)
Quarter: 2025Q3

REPORT INFORMATION
  Report Type: Spontaneous
  Country: US (occurrence: US)
  Receive Date: 20250617
  Receipt Date: 20250912
  Transmission Date: 20251021
  Serious: Yes (Hospitalization, Other)
  Sender: SANDOZ
  Company Number: US-002147023-NVSC2025US093323

PATIENT
  Age: 42 Year
  Sex: Female
  Weight: 65.306 kg

DRUGS (18)
  1. AZITHROMYCIN [Suspect]
     Active Substance: AZITHROMYCIN
     Indication: Mycobacterium avium complex infection
     Dosage: 500 MG, QD
     Route: 048
     Dates: start: 20250310
  2. ARIKAYCE [Suspect]
     Active Substance: AMIKACIN
     Indication: Mycobacterium avium complex infection
     Dosage: 590 UG, QD (INAHLED NEBULIZER)
     Route: 055
     Dates: start: 20250417
  3. CLOFAZIMINE [Suspect]
     Active Substance: CLOFAZIMINE
     Indication: Mycobacterium avium complex infection
     Dosage: 100 MG, QD
     Route: 048
     Dates: start: 20250404, end: 20250626
  4. CLOFAZIMINE [Suspect]
     Active Substance: CLOFAZIMINE
     Dosage: 100 MG, QD
     Route: 048
  5. ACETYLCYSTEINE [Concomitant]
     Active Substance: ACETYLCYSTEINE
     Indication: Product used for unknown indication
     Dosage: 2 DRP (ONE DROP TO BOTH EYES), QID, (10 %  SOULTION) (10 %  SOULTION)
     Route: 047
     Dates: start: 20250202
  6. AMLODIPINE [Concomitant]
     Active Substance: AMLODIPINE BESYLATE
     Indication: Product used for unknown indication
     Route: 048
  7. ATORVASTATIN [Concomitant]
     Active Substance: ATORVASTATIN
     Indication: Product used for unknown indication
     Dosage: 40 MG, QD
     Route: 048
     Dates: start: 20250123
  8. CARVEDILOL [Concomitant]
     Active Substance: CARVEDILOL
     Indication: Product used for unknown indication
     Dosage: 12.5 MG, BID
     Route: 048
     Dates: start: 20250416
  9. ERGOCALCIFEROL [Concomitant]
     Active Substance: ERGOCALCIFEROL
     Indication: Product used for unknown indication
     Dosage: 1250 UG, QW,1250 UG, QW (EVERY 7 DAYS)
     Route: 048
     Dates: start: 20250309
  10. ETHAMBUTOL [Concomitant]
     Active Substance: ETHAMBUTOL HYDROCHLORIDE
     Indication: Product used for unknown indication
     Dosage: 1000 MG, QD
     Route: 048
     Dates: start: 20250309
  11. FLUOROMETHOLONE [Concomitant]
     Active Substance: FLUOROMETHOLONE
     Indication: Product used for unknown indication
     Dosage: 0.1 % (OPHTHALMIC SUSPENSION, 2 DRP  (ONE DROP TO BOTH EYES), QD
     Route: 047
     Dates: start: 20250515
  12. ISOSORBIDE MONONITRATE [Concomitant]
     Active Substance: ISOSORBIDE MONONITRATE
     Indication: Product used for unknown indication
     Dosage: 30 MG, QD
     Route: 048
     Dates: start: 20250310
  13. LEVOTHYROXINE [Concomitant]
     Active Substance: LEVOTHYROXINE
     Indication: Product used for unknown indication
     Dosage: 150 UG, QD
     Route: 048
     Dates: start: 2021
  14. LOSARTAN [Concomitant]
     Active Substance: LOSARTAN
     Indication: Product used for unknown indication
     Dosage: 50 MG, QD
     Route: 048
     Dates: start: 20250325
  15. LOTEPREDNOL ETABONATE [Concomitant]
     Active Substance: LOTEPREDNOL ETABONATE
     Indication: Product used for unknown indication
     Dosage: 0.25 % (OPHTHALMIC DROPS ONE TO EACH  EYE, 2 DRP) BID
     Route: 047
     Dates: start: 20250507
  16. CALCIUM CHLORIDE\MAGNESIUM CHLORIDE [Concomitant]
     Active Substance: CALCIUM CHLORIDE\MAGNESIUM CHLORIDE
     Indication: Product used for unknown indication
     Dosage: 64 MG, QD
     Route: 048
     Dates: start: 20250311
  17. TRIKAFTA [Concomitant]
     Active Substance: ELEXACAFTOR\IVACAFTOR\TEZACAFTOR
     Indication: Product used for unknown indication
     Dosage: 100-50-75, BID (2 ORANGE TABLETS DAILY  AM AND 1 BLUE TABLET PM)
     Route: 065
     Dates: start: 20250319
  18. UMECLIDINIUM BROMIDE\VILANTEROL TRIFENATATE [Concomitant]
     Active Substance: UMECLIDINIUM BROMIDE\VILANTEROL TRIFENATATE
     Indication: Product used for unknown indication
     Dosage: 87.5 UG (62.5-25 MCG INHALER ONE PUFF  INTO LUNGS), QD
     Route: 055
     Dates: start: 20250309

REACTIONS (8)
  - Acute respiratory failure [Not Recovered/Not Resolved]
  - Oxygen saturation decreased [Unknown]
  - Dyspnoea [Unknown]
  - Infective pulmonary exacerbation of cystic fibrosis [Unknown]
  - Deafness [Not Recovered/Not Resolved]
  - Taste disorder [Not Recovered/Not Resolved]
  - Alopecia [Not Recovered/Not Resolved]
  - Tinnitus [Not Recovered/Not Resolved]

NARRATIVE: CASE EVENT DATE: 20250528
